FAERS Safety Report 7916789-0 (Version None)
Quarter: 2011Q4

REPORT INFORMATION
  Report Type: 
  Country: None (occurrence: None)
  Receive Date: 20111116
  Receipt Date: 20111104
  Transmission Date: 20120403
  Serious: Yes (Hospitalization, Other)
  Sender: FDA-Public Use
  Company Number: US-BAYER-2011-052333

PATIENT
  Age: 38 Year
  Sex: Female
  Weight: 129.71 kg

DRUGS (4)
  1. PROZAC [Concomitant]
     Indication: DEPRESSION
     Dosage: UNK
     Dates: start: 20040101
  2. YASMIN [Suspect]
     Indication: ACNE
  3. YASMIN [Suspect]
     Indication: CONTRACEPTION
     Dosage: UNK
     Dates: start: 20090101, end: 20090730
  4. YASMIN [Suspect]
     Indication: MENSTRUAL CYCLE MANAGEMENT

REACTIONS (8)
  - PAIN [None]
  - DEEP VEIN THROMBOSIS [None]
  - HYPOAESTHESIA [None]
  - INJURY [None]
  - PULMONARY EMBOLISM [None]
  - EMOTIONAL DISTRESS [None]
  - PAIN IN EXTREMITY [None]
  - HAEMATOMA [None]
